FAERS Safety Report 17853596 (Version 7)
Quarter: 2021Q3

REPORT INFORMATION
  Report Type: Report from Study
  Country: US (occurrence: US)
  Receive Date: 20200603
  Receipt Date: 20210809
  Transmission Date: 20211014
  Serious: Yes (Other)
  Sender: FDA-Public Use
  Company Number: NVSC2020US151698

PATIENT
  Age: 66 Year
  Sex: Female

DRUGS (3)
  1. COSENTYX [Suspect]
     Active Substance: SECUKINUMAB
     Dosage: 300 MG
     Route: 065
     Dates: start: 202006, end: 202103
  2. COSENTYX [Suspect]
     Active Substance: SECUKINUMAB
     Indication: PSORIATIC ARTHROPATHY
     Dosage: UNK
     Route: 058
     Dates: start: 20200521
  3. HUMIRA [Suspect]
     Active Substance: ADALIMUMAB
     Indication: PRODUCT USED FOR UNKNOWN INDICATION
     Dosage: UNK
     Route: 065

REACTIONS (11)
  - Pyrexia [Unknown]
  - Tendon pain [Not Recovered/Not Resolved]
  - Malaise [Unknown]
  - Arthralgia [Not Recovered/Not Resolved]
  - Chills [Unknown]
  - Exostosis [Unknown]
  - Psoriatic arthropathy [Unknown]
  - Arthritis [Unknown]
  - Inappropriate schedule of product administration [Unknown]
  - Drug ineffective [Unknown]
  - Pain in extremity [Unknown]

NARRATIVE: CASE EVENT DATE: 20200521
